FAERS Safety Report 5688193-X (Version None)
Quarter: 2008Q1

REPORT INFORMATION
  Report Type: 
  Country: None (occurrence: None)
  Receive Date: 20080327
  Receipt Date: 20080314
  Transmission Date: 20080703
  Serious: Yes (Other)
  Sender: FDA-Public Use
  Company Number: SPV1-2008-00566

PATIENT
  Sex: Male

DRUGS (1)
  1. ADDERALL XR 30 [Suspect]
     Dosage: 15 MG

REACTIONS (2)
  - DEPRESSION [None]
  - SUICIDAL IDEATION [None]
